FAERS Safety Report 25450281 (Version 1)
Quarter: 2025Q2

REPORT INFORMATION
  Report Type: Spontaneous
  Country: US (occurrence: US)
  Receive Date: 20250618
  Receipt Date: 20250618
  Transmission Date: 20250716
  Serious: No
  Sender: Haleon PLC
  Company Number: US-AMGEN-USASP2025114551

PATIENT
  Sex: Male
  Weight: 38.5 kg

DRUGS (1)
  1. ADVIL [Suspect]
     Active Substance: IBUPROFEN
     Indication: Product used for unknown indication

REACTIONS (5)
  - Illness [Unknown]
  - Hypersensitivity [Unknown]
  - Rash [Unknown]
  - Overdose [Unknown]
  - Drug ineffective [Unknown]
